FAERS Safety Report 6236685-7 (Version None)
Quarter: 2009Q2

REPORT INFORMATION
  Report Type: 
  Country: None (occurrence: None)
  Receive Date: 20090619
  Receipt Date: 20090213
  Transmission Date: 20091009
  Serious: No
  Sender: FDA-Public Use
  Company Number: US-ASTRAZENECA-2009UW04180

PATIENT
  Age: 19763 Day
  Sex: Male
  Weight: 77.1 kg

DRUGS (4)
  1. ATACAND [Suspect]
     Route: 048
  2. INSULIN [Concomitant]
  3. PERCOCET [Concomitant]
  4. MORPHINE [Concomitant]

REACTIONS (2)
  - ACCIDENTAL OVERDOSE [None]
  - VOMITING [None]
